FAERS Safety Report 18628621 (Version 2)
Quarter: 2021Q2

REPORT INFORMATION
  Report Type: Report from Study
  Country: DE (occurrence: DE)
  Receive Date: 20201217
  Receipt Date: 20210625
  Transmission Date: 20210717
  Serious: Yes (Other)
  Sender: FDA-Public Use
  Company Number: DE-ELI_LILLY_AND_COMPANY-DE202009005447

PATIENT
  Age: 77 Year
  Sex: Female

DRUGS (2)
  1. FORSTEO [Suspect]
     Active Substance: TERIPARATIDE
     Indication: OSTEOPOROSIS
     Dosage: UNK UNK, DAILY
     Route: 058
     Dates: start: 20190906, end: 202106
  2. DICLOPHENAC [Suspect]
     Active Substance: DICLOFENAC SODIUM
     Indication: PAIN IN EXTREMITY
     Dosage: UNK UNK, EACH MORNING
     Route: 065

REACTIONS (4)
  - Blood parathyroid hormone decreased [Not Recovered/Not Resolved]
  - Body temperature increased [Unknown]
  - Renal function test abnormal [Recovered/Resolved]
  - Pain in extremity [Not Recovered/Not Resolved]
